FAERS Safety Report 23510613 (Version 1)
Quarter: 2024Q1

REPORT INFORMATION
  Report Type: Spontaneous
  Country: US (occurrence: US)
  Receive Date: 20240211
  Receipt Date: 20240211
  Transmission Date: 20240409
  Serious: No
  Sender: FDA-Public Use
  Company Number: US-AIMMUNE THERAPEUTICS, INC.-2023AIMT01332

PATIENT

DRUGS (5)
  1. PALFORZIA [Suspect]
     Active Substance: PEANUT
     Indication: Food allergy
     Dosage: IDE (0.5-6MG), ONCE
     Route: 048
     Dates: start: 20230607, end: 20230607
  2. PALFORZIA [Suspect]
     Active Substance: PEANUT
     Dosage: 240MG, 1X/DAY
     Route: 048
     Dates: start: 20231102
  3. PALFORZIA [Suspect]
     Active Substance: PEANUT
     Dosage: 240MG, ONCE, LAST DOSE PRIOR TO EVENT
     Route: 048
     Dates: start: 202311, end: 202311
  4. CLARITIN [Concomitant]
     Active Substance: LORATADINE
     Indication: Product used for unknown indication
     Dosage: 5 MG
  5. EPIPEN JR [Concomitant]
     Active Substance: EPINEPHRINE
     Indication: Product used for unknown indication
     Dosage: 0.15 MG

REACTIONS (1)
  - Nasopharyngitis [Recovered/Resolved]

NARRATIVE: CASE EVENT DATE: 20231114
